FAERS Safety Report 5016808-8 (Version None)
Quarter: 2006Q2

REPORT INFORMATION
  Report Type: 
  Country: None (occurrence: None)
  Receive Date: 20060602
  Receipt Date: 20051213
  Transmission Date: 20061013
  Serious: No
  Sender: FDA-Public Use
  Company Number: US-GLAXOSMITHKLINE-A0585710A

PATIENT
  Age: 67 Year
  Sex: Male

DRUGS (4)
  1. AUGMENTIN '125' [Suspect]
     Indication: SINUSITIS
     Dosage: 500MG TWICE PER DAY
     Route: 048
     Dates: start: 20051209
  2. TIMOPTIC [Concomitant]
  3. LUMIGAN [Concomitant]
  4. ALPRAZOLAM [Concomitant]

REACTIONS (2)
  - DIARRHOEA [None]
  - THERAPEUTIC RESPONSE DELAYED [None]
